FAERS Safety Report 17141149 (Version 2)
Quarter: 2020Q1

REPORT INFORMATION
  Report Type: Spontaneous
  Country: US (occurrence: US)
  Receive Date: 20191211
  Receipt Date: 20200110
  Transmission Date: 20200409
  Serious: No
  Sender: FDA-Public Use
  Company Number: US-PFIZER INC-2019303195

PATIENT
  Age: 69 Year
  Sex: Female

DRUGS (1)
  1. IBRANCE [Suspect]
     Active Substance: PALBOCICLIB
     Indication: BREAST CANCER FEMALE
     Dosage: 75 MG, CYCLIC (3 WEEKS THEN OFF 1 WEEK AND BACK ON FOR 3 WEEKS)
     Route: 048

REACTIONS (2)
  - Dysphonia [Unknown]
  - Malaise [Recovering/Resolving]
